FAERS Safety Report 16116367 (Version 1)
Quarter: 2019Q1

REPORT INFORMATION
  Report Type: Spontaneous
  Country: CH (occurrence: CH)
  Receive Date: 20190326
  Receipt Date: 20190326
  Transmission Date: 20190418
  Serious: Yes (Other)
  Sender: FDA-Public Use
  Company Number: CH-B.I. PHARMACEUTICALS,INC./RIDGEFIELD-2019-BI-012957

PATIENT
  Age: 55 Year
  Sex: Male

DRUGS (1)
  1. GILOTRIF [Suspect]
     Active Substance: AFATINIB
     Indication: EGFR GENE MUTATION
     Route: 065
     Dates: start: 201902, end: 201902

REACTIONS (3)
  - Septic shock [Unknown]
  - Diarrhoea [Unknown]
  - Septic shock [Unknown]

NARRATIVE: CASE EVENT DATE: 201902
